FAERS Safety Report 14853532 (Version 1)
Quarter: 2018Q2

REPORT INFORMATION
  Report Type: Spontaneous
  Country: US (occurrence: US)
  Receive Date: 20180507
  Receipt Date: 20180507
  Transmission Date: 20180711
  Serious: Yes (Other)
  Sender: FDA-Public Use
  Company Number: US-PFIZER INC-2018184599

PATIENT
  Age: 65 Year
  Sex: Female
  Weight: 100.24 kg

DRUGS (1)
  1. XELJANZ XR [Suspect]
     Active Substance: TOFACITINIB CITRATE
     Indication: RHEUMATOID ARTHRITIS
     Dosage: 11 MG, 1X/DAY

REACTIONS (5)
  - Pneumonia [Unknown]
  - Spinal column injury [Unknown]
  - Insomnia [Unknown]
  - Nerve compression [Unknown]
  - Oxygen saturation decreased [Unknown]
